FAERS Safety Report 11137853 (Version 1)
Quarter: 2015Q2

REPORT INFORMATION
  Report Type: Spontaneous
  Country: US (occurrence: US)
  Receive Date: 20150526
  Receipt Date: 20150526
  Transmission Date: 20150821
  Serious: No
  Sender: FDA-Public Use
  Company Number: US-MALLINCKRODT-T201501086

PATIENT
  Age: 62 Year
  Sex: Male
  Weight: 77 kg

DRUGS (7)
  1. BACLOFEN. [Concomitant]
     Active Substance: BACLOFEN
  2. DIAZEPAM. [Concomitant]
     Active Substance: DIAZEPAM
  3. REBIF [Concomitant]
     Active Substance: INTERFERON BETA-1A
     Dosage: 3 TIMES WEEKLY
  4. GABAPENTIN. [Concomitant]
     Active Substance: GABAPENTIN
  5. VITAMIN D [Concomitant]
     Active Substance: CHOLECALCIFEROL
  6. H.P. ACTHAR [Suspect]
     Active Substance: CORTICOTROPIN
     Indication: MULTIPLE SCLEROSIS
     Dosage: 1 ML DAILY FOR 5 DAYS A MONTH
     Route: 058
     Dates: start: 201406
  7. AMPYRA [Concomitant]
     Active Substance: DALFAMPRIDINE

REACTIONS (6)
  - Blood glucose increased [Not Recovered/Not Resolved]
  - Hypoaesthesia [Not Recovered/Not Resolved]
  - Muscular weakness [Not Recovered/Not Resolved]
  - Multiple sclerosis [Not Recovered/Not Resolved]
  - Anaemia [Not Recovered/Not Resolved]
  - General physical health deterioration [Not Recovered/Not Resolved]

NARRATIVE: CASE EVENT DATE: 20150112
